FAERS Safety Report 5286837-8 (Version None)
Quarter: 2007Q2

REPORT INFORMATION
  Report Type: 
  Country: None (occurrence: None)
  Receive Date: 20070404
  Receipt Date: 20070404
  Transmission Date: 20071010
  Serious: Yes (Hospitalization)
  Sender: FDA-Public Use
  Company Number: AT-ROCHE-320659

PATIENT
  Age: 41 Year
  Sex: Female

DRUGS (2)
  1. ISOTRETINOIN [Suspect]
     Indication: MALIGNANT MELANOMA
     Route: 048
     Dates: start: 20010302, end: 20020318
  2. INTERFERON ALFA-2A [Suspect]
     Indication: MALIGNANT MELANOMA
     Route: 058
     Dates: start: 20010302, end: 20020318

REACTIONS (1)
  - MALIGNANT MELANOMA [None]
